FAERS Safety Report 14841619 (Version 2)
Quarter: 2018Q3

REPORT INFORMATION
  Report Type: Spontaneous
  Country: CA (occurrence: CA)
  Receive Date: 20180503
  Receipt Date: 20180724
  Transmission Date: 20181010
  Serious: Yes (Other)
  Sender: FDA-Public Use
  Company Number: CA-PFIZER INC-2018169879

PATIENT
  Age: 62 Year
  Sex: Female

DRUGS (9)
  1. INSULIN [Concomitant]
     Active Substance: INSULIN NOS
     Indication: DIABETES MELLITUS
  2. PRISTIQ EXTENDED?RELEASE [Suspect]
     Active Substance: DESVENLAFAXINE SUCCINATE
     Indication: DEPRESSION
     Dosage: 50 MG, DAILY
     Route: 048
     Dates: start: 20150915
  3. PRISTIQ EXTENDED?RELEASE [Suspect]
     Active Substance: DESVENLAFAXINE SUCCINATE
     Indication: ANXIETY
     Dosage: 100 MG, DAILY
     Route: 048
     Dates: start: 201510
  4. PRISTIQ EXTENDED?RELEASE [Suspect]
     Active Substance: DESVENLAFAXINE SUCCINATE
     Dosage: 150 MG, DAILY
     Route: 048
     Dates: start: 20180319
  5. PRISTIQ EXTENDED?RELEASE [Suspect]
     Active Substance: DESVENLAFAXINE SUCCINATE
     Dosage: 100 MG, DAILY
     Route: 048
     Dates: start: 20180419
  6. METFORMIN [Concomitant]
     Active Substance: METFORMIN HYDROCHLORIDE
     Indication: DIABETES MELLITUS
  7. PRISTIQ EXTENDED?RELEASE [Suspect]
     Active Substance: DESVENLAFAXINE SUCCINATE
     Dosage: 200 MG, DAILY
     Route: 048
     Dates: start: 20170629
  8. PRISTIQ EXTENDED?RELEASE [Suspect]
     Active Substance: DESVENLAFAXINE SUCCINATE
     Dosage: 150 MG, DAILY
     Route: 048
     Dates: start: 201601
  9. ZOCOR [Concomitant]
     Active Substance: SIMVASTATIN
     Indication: DIABETES MELLITUS

REACTIONS (9)
  - Overdose [Recovering/Resolving]
  - Cough [Unknown]
  - Dyspnoea [Unknown]
  - Cardiac failure congestive [Unknown]
  - Atrial fibrillation [Recovering/Resolving]
  - Pneumonia [Unknown]
  - Influenza [Unknown]
  - Drug ineffective [Unknown]
  - Heart rate increased [Unknown]

NARRATIVE: CASE EVENT DATE: 201601
